FAERS Safety Report 19290630 (Version 1)
Quarter: 2021Q2

REPORT INFORMATION
  Report Type: Spontaneous
  Country: US (occurrence: US)
  Receive Date: 20210521
  Receipt Date: 20210521
  Transmission Date: 20210717
  Serious: No
  Sender: FDA-Public Use
  Company Number: US-RADIUS HEALTH INC.-2020US003488

PATIENT
  Sex: Female

DRUGS (2)
  1. TYMLOS [Suspect]
     Active Substance: ABALOPARATIDE
     Indication: SENILE OSTEOPOROSIS
     Dosage: 80MCG/QD
     Route: 058
     Dates: start: 20200908
  2. FORTEO [Concomitant]
     Active Substance: TERIPARATIDE
     Indication: PRODUCT USED FOR UNKNOWN INDICATION
     Dosage: 600/2.4, UNK

REACTIONS (4)
  - Orthostatic hypertension [Not Recovered/Not Resolved]
  - Flushing [Not Recovered/Not Resolved]
  - Headache [Not Recovered/Not Resolved]
  - Vertigo [Not Recovered/Not Resolved]
